FAERS Safety Report 8055129-6 (Version None)
Quarter: 2012Q1

REPORT INFORMATION
  Report Type: 
  Country: None (occurrence: None)
  Receive Date: 20120119
  Receipt Date: 20120111
  Transmission Date: 20120608
  Serious: Yes (Other)
  Sender: FDA-Public Use
  Company Number: GB-BRISTOL-MYERS SQUIBB COMPANY-16342560

PATIENT
  Age: 29 Year
  Sex: Female

DRUGS (2)
  1. ETANERCEPT [Concomitant]
     Indication: JUVENILE ARTHRITIS
     Route: 058
     Dates: start: 20030407, end: 20110411
  2. ORENCIA [Suspect]
     Indication: JUVENILE ARTHRITIS
     Route: 042
     Dates: start: 20110714, end: 20111208

REACTIONS (2)
  - DYSARTHRIA [None]
  - HEMIPARESIS [None]
